FAERS Safety Report 8539137-4 (Version None)
Quarter: 2012Q3

REPORT INFORMATION
  Report Type: 
  Country: None (occurrence: None)
  Receive Date: 20120726
  Receipt Date: 20120712
  Transmission Date: 20120928
  Serious: Yes (Hospitalization)
  Sender: FDA-Public Use
  Company Number: KR-MYLANLABS-2012S1014616

PATIENT
  Age: 46 Year
  Sex: Male

DRUGS (9)
  1. MORPHINE SULFATE [Suspect]
     Route: 008
  2. MORPHINE SULFATE [Suspect]
     Route: 037
  3. MORPHINE SULFATE [Suspect]
     Indication: PAIN
     Dosage: 0.28MG/ML; BASAL RATE 0.5MG/ML, ON-DEMAND BOLUS 4.0ML, LOCK-OUT INTERVAL 30MIN
     Route: 008
  4. MORPHINE SULFATE [Suspect]
     Dosage: BASAL RATE 1.0 ML/H
     Route: 008
  5. MORPHINE SULFATE [Suspect]
     Route: 037
  6. MORPHINE SULFATE [Suspect]
     Route: 008
  7. MORPHINE SULFATE [Suspect]
     Dosage: 0.28MG/ML; BASAL RATE 0.5MG/ML, ON-DEMAND BOLUS 4.0ML, LOCK-OUT INTERVAL 30MIN
     Route: 008
  8. MORPHINE SULFATE [Suspect]
     Dosage: BASAL RATE 1.0 ML/H
     Route: 008
  9. TRAMADOL HYDROCHLORIDE [Suspect]
     Indication: PAIN
     Route: 065

REACTIONS (5)
  - RESPIRATORY DEPRESSION [None]
  - DYSARTHRIA [None]
  - DRUG INTERACTION [None]
  - PNEUMONIA ASPIRATION [None]
  - SEDATION [None]
